FAERS Safety Report 19405787 (Version 1)
Quarter: 2021Q2

REPORT INFORMATION
  Report Type: Spontaneous
  Country: US (occurrence: US)
  Receive Date: 20210611
  Receipt Date: 20210611
  Transmission Date: 20210717
  Serious: Yes (Other)
  Sender: FDA-Public Use
  Company Number: US-SA-2021SA195209

PATIENT
  Sex: Female

DRUGS (3)
  1. DUPIXENT [Suspect]
     Active Substance: DUPILUMAB
     Indication: DERMATITIS ATOPIC
     Dosage: UNK
     Route: 058
  2. COVID?19 VACCINE NOS. [Suspect]
     Active Substance: COVID-19 VACCINE NOS
     Dosage: UNK
  3. FEXOFENADINE HCL [Concomitant]
     Active Substance: FEXOFENADINE HYDROCHLORIDE
     Dosage: UNK

REACTIONS (8)
  - Headache [Unknown]
  - Abdominal discomfort [Unknown]
  - Pruritus [Unknown]
  - Muscle spasms [Unknown]
  - Depression [Not Recovered/Not Resolved]
  - Fatigue [Unknown]
  - Back pain [Unknown]
  - Heart rate increased [Unknown]
